FAERS Safety Report 15434023 (Version 2)
Quarter: 2019Q1

REPORT INFORMATION
  Report Type: Spontaneous
  Country: US (occurrence: US)
  Receive Date: 20180927
  Receipt Date: 20190116
  Transmission Date: 20190417
  Serious: Yes (Other)
  Sender: FDA-Public Use
  Company Number: US-SA-2018SA266453

PATIENT
  Age: 51 Year
  Sex: Female
  Weight: 98 kg

DRUGS (28)
  1. TAXOTERE [Suspect]
     Active Substance: DOCETAXEL
     Dosage: 140 MG, Q3W
     Route: 042
     Dates: start: 20110222, end: 20110222
  2. ZESTRIL [Concomitant]
     Active Substance: LISINOPRIL
     Dosage: UNK
     Dates: start: 20000101
  3. CYTOXAN [Concomitant]
     Active Substance: CYCLOPHOSPHAMIDE
  4. ATORVASTATIN [Concomitant]
     Active Substance: ATORVASTATIN
  5. NOVOLOG [Concomitant]
     Active Substance: INSULIN ASPART
  6. VICTOZA [Concomitant]
     Active Substance: LIRAGLUTIDE
  7. PRAVASTATIN. [Concomitant]
     Active Substance: PRAVASTATIN
     Dosage: UNK
     Dates: start: 20000101, end: 20181116
  8. ASMANEX [Concomitant]
     Active Substance: MOMETASONE FUROATE
  9. LISINOPRIL. [Concomitant]
     Active Substance: LISINOPRIL
  10. METOPROLOL. [Concomitant]
     Active Substance: METOPROLOL
  11. KEFLEX [Concomitant]
     Active Substance: CEPHALEXIN
  12. ADRIAMYCIN [Concomitant]
     Active Substance: DOXORUBICIN HYDROCHLORIDE
  13. DEXAMETHASONE. [Concomitant]
     Active Substance: DEXAMETHASONE
  14. AVONEX [Concomitant]
     Active Substance: INTERFERON BETA-1A
  15. FEMARA [Concomitant]
     Active Substance: LETROZOLE
     Dosage: UNK
     Dates: start: 20110725, end: 20120131
  16. NEULASTA [Concomitant]
     Active Substance: PEGFILGRASTIM
  17. NORVASC [Concomitant]
     Active Substance: AMLODIPINE BESYLATE
  18. SYMBICORT [Concomitant]
     Active Substance: BUDESONIDE\FORMOTEROL FUMARATE DIHYDRATE
  19. VITAMIN B12 [VITAMIN B12 NOS] [Concomitant]
     Active Substance: CYANOCOBALAMIN
  20. LEVEMIR [Concomitant]
     Active Substance: INSULIN DETEMIR
     Dosage: UNK
     Dates: start: 20000101, end: 20141231
  21. TAXOTERE [Suspect]
     Active Substance: DOCETAXEL
     Indication: BREAST CANCER
     Dosage: 140 MG, Q3W
     Route: 042
     Dates: start: 20101221, end: 20101221
  22. NEOSAR [Concomitant]
     Active Substance: CYCLOPHOSPHAMIDE
  23. DIABETA [GLIBENCLAMIDE] [Concomitant]
  24. VITAMIN D [Concomitant]
     Active Substance: CHOLECALCIFEROL
  25. ALOXI [Concomitant]
     Active Substance: PALONOSETRON HYDROCHLORIDE
  26. COMBIVENT [Concomitant]
     Active Substance: ALBUTEROL SULFATE\IPRATROPIUM BROMIDE
  27. METFORMIN [Concomitant]
     Active Substance: METFORMIN HYDROCHLORIDE
  28. LETROZOLE. [Concomitant]
     Active Substance: LETROZOLE

REACTIONS (1)
  - Alopecia [Not Recovered/Not Resolved]

NARRATIVE: CASE EVENT DATE: 20110822
